FAERS Safety Report 5376177-0 (Version None)
Quarter: 2007Q3

REPORT INFORMATION
  Report Type: 
  Country: None (occurrence: None)
  Receive Date: 20070702
  Receipt Date: 20070620
  Transmission Date: 20080115
  Serious: Yes (Disabling)
  Sender: FDA-Public Use
  Company Number: GB-ASTRAZENECA-2007GB01044

PATIENT
  Age: 558 Month
  Sex: Female

DRUGS (3)
  1. NOLVADEX [Suspect]
     Indication: BREAST CANCER
     Route: 048
     Dates: start: 20030101
  2. CITALOPRAM HYDROBROMIDE [Concomitant]
     Indication: DEPRESSION
     Route: 048
     Dates: start: 20060501, end: 20061001
  3. CITALOPRAM HYDROBROMIDE [Concomitant]
     Route: 048
     Dates: start: 20070612

REACTIONS (3)
  - ARTHRALGIA [None]
  - MIXED CONNECTIVE TISSUE DISEASE [None]
  - SYSTEMIC LUPUS ERYTHEMATOSUS [None]
